FAERS Safety Report 9076209 (Version 1)
Quarter: 2013Q1

REPORT INFORMATION
  Report Type: Report from Study
  Country: US (occurrence: US)
  Receive Date: 20130129
  Receipt Date: 20130129
  Transmission Date: 20140127
  Serious: No
  Sender: FDA-Public Use
  Company Number: US-ABBOTT-12P-163-0952017-00

PATIENT
  Age: 68 Year
  Sex: Female

DRUGS (12)
  1. HUMIRA 40 MG/0.8 ML PEN [Suspect]
     Indication: RHEUMATOID ARTHRITIS
  2. SINEMET [Suspect]
     Indication: PRODUCT USED FOR UNKNOWN INDICATION
     Dosage: 25/100MG TID TO 25/100MG 2 TAB TID TO 1 TAB TID
  3. LEXAPRO [Suspect]
     Indication: PRODUCT USED FOR UNKNOWN INDICATION
  4. PROAIR [Concomitant]
     Indication: DYSPNOEA
     Route: 055
  5. FLOVENT DISKUS [Concomitant]
     Indication: RESPIRATORY TRACT INFLAMMATION
  6. TYLENOL EXTRA STRENGTH [Concomitant]
     Indication: PAIN
  7. CALCIUM NASAL SPRAY [Concomitant]
     Indication: OSTEOPOROSIS
     Dosage: DAILY
  8. LASIX [Concomitant]
     Indication: HYPERTENSION
     Dosage: DAILY
  9. LEVOTHYROXIN [Concomitant]
     Indication: HYPOTHYROIDISM
     Dosage: DAILY
  10. METOPROLOL [Concomitant]
     Indication: HYPERTENSION
  11. ESTROPIPATE [Concomitant]
     Indication: PRODUCT USED FOR UNKNOWN INDICATION
     Dosage: DAILY
  12. KLONOPIN [Concomitant]
     Indication: ANXIETY

REACTIONS (13)
  - Parkinsonism [Unknown]
  - Injection site pruritus [Not Recovered/Not Resolved]
  - Injection site erythema [Not Recovered/Not Resolved]
  - Pain in extremity [Unknown]
  - Pain [Unknown]
  - Muscular weakness [Unknown]
  - Fall [Unknown]
  - Pain [Unknown]
  - Rheumatoid arthritis [Unknown]
  - Rash papular [Unknown]
  - Rash papular [Unknown]
  - Rash papular [Unknown]
  - Injection site erythema [Unknown]
